FAERS Safety Report 9557625 (Version 1)
Quarter: 2013Q3

REPORT INFORMATION
  Report Type: Spontaneous
  Country: FR (occurrence: FR)
  Receive Date: 20130926
  Receipt Date: 20130926
  Transmission Date: 20140515
  Serious: Yes (Other)
  Sender: FDA-Public Use
  Company Number: FR-GLAXOSMITHKLINE-B0923594A

PATIENT
  Age: 58 Year
  Sex: Male

DRUGS (2)
  1. ZELITREX [Suspect]
     Indication: ORAL HERPES
     Dosage: 500MG PER DAY
     Route: 048
     Dates: start: 20130823, end: 20130824
  2. AMLOR [Concomitant]
     Route: 048
     Dates: start: 20130822

REACTIONS (3)
  - Rash papular [Recovered/Resolved]
  - Dysphagia [Recovered/Resolved]
  - Oedema [Recovered/Resolved]
